FAERS Safety Report 9635425 (Version 4)
Quarter: 2016Q1

REPORT INFORMATION
  Report Type: Spontaneous
  Country: CA (occurrence: CA)
  Receive Date: 20131021
  Receipt Date: 20160203
  Transmission Date: 20160526
  Serious: Yes (Other)
  Sender: FDA-Public Use
  Company Number: CA-009507513-1310CAN007077

PATIENT
  Age: 52 Year
  Sex: Female

DRUGS (3)
  1. COPEGUS [Suspect]
     Active Substance: RIBAVIRIN
     Indication: CHRONIC HEPATITIS C
     Dosage: 1000 MG, DAILY  (35 TABLET PER WEEK)
     Route: 048
     Dates: start: 20130704, end: 20131003
  2. PEGASYS [Suspect]
     Active Substance: PEGINTERFERON ALFA-2A
     Indication: CHRONIC HEPATITIS C
     Dosage: 180 MICROGRAM, ONCE A WEEK (1 IN 1 WK) (180MCG/0.5ML)
     Route: 058
     Dates: start: 20130704, end: 20131003
  3. VICTRELIS [Suspect]
     Active Substance: BOCEPREVIR
     Indication: CHRONIC HEPATITIS C
     Dosage: 800 MG, THRICE A DAY (3 IN 1 D)
     Route: 048
     Dates: start: 20130801, end: 20131003

REACTIONS (3)
  - Chest wall mass [Unknown]
  - White blood cell count decreased [Unknown]
  - Platelet count decreased [Unknown]

NARRATIVE: CASE EVENT DATE: 20131002
